FAERS Safety Report 15058963 (Version 1)
Quarter: 2018Q2

REPORT INFORMATION
  Report Type: Report from Study
  Country: FR (occurrence: FR)
  Receive Date: 20180625
  Receipt Date: 20180625
  Transmission Date: 20180711
  Serious: Yes (Death)
  Sender: FDA-Public Use
  Company Number: FR-PFIZER INC-2018253591

PATIENT

DRUGS (4)
  1. TRABECTEDIN [Suspect]
     Active Substance: TRABECTEDIN
     Indication: LEIOMYOSARCOMA
     Dosage: 1.1 MG/M2, CYCLIC (3 H CENTRAL VENOUS INFUSION ON DAY 1, EVERY 3 WEEKS)
     Route: 042
  2. DOXORUBICIN HCL [Suspect]
     Active Substance: DOXORUBICIN HYDROCHLORIDE
     Indication: LEIOMYOSARCOMA
     Dosage: 60 MG/M2, CYCLIC(10-15 MIN CENTRAL VENOUS INFUSION ON DAY 1, EVERY 3 WEEKS)
     Route: 042
  3. DEXAMETHASONE. [Concomitant]
     Active Substance: DEXAMETHASONE
     Indication: PREMEDICATION
     Dosage: 20 MG, CYCLIC (30 MIN BEFORE STARTING DOXORUBICIN, EVERY 3 WEEKS)
  4. PEGFILGRASTIM [Suspect]
     Active Substance: PEGFILGRASTIM
     Indication: LEIOMYOSARCOMA
     Dosage: 6 MG, CYCLIC (ON DAY 2, EVERY 3 WEEKS)
     Route: 058

REACTIONS (1)
  - Death [Fatal]
